FAERS Safety Report 25493151 (Version 1)
Quarter: 2025Q2

REPORT INFORMATION
  Report Type: Spontaneous
  Country: CA (occurrence: CA)
  Receive Date: 20250630
  Receipt Date: 20250630
  Transmission Date: 20250716
  Serious: Yes (Other)
  Sender: MYLAN
  Company Number: CA-MYLANLABS-2024M1116767

PATIENT
  Sex: Male

DRUGS (3)
  1. FONDAPARINUX [Suspect]
     Active Substance: FONDAPARINUX
     Indication: Heparin-induced thrombocytopenia
  2. RIVAROXABAN [Suspect]
     Active Substance: RIVAROXABAN
     Indication: Heparin-induced thrombocytopenia
     Dosage: 15 MILLIGRAM, BID (TILL DAY 21)
  3. RIVAROXABAN [Suspect]
     Active Substance: RIVAROXABAN
     Dosage: 20 MILLIGRAM, QD (TILL DAY 30)

REACTIONS (3)
  - Administration site plaque [Unknown]
  - Drug ineffective for unapproved indication [Unknown]
  - Off label use [Unknown]
